FAERS Safety Report 16387934 (Version 7)
Quarter: 2019Q4

REPORT INFORMATION
  Report Type: Spontaneous
  Country: US (occurrence: US)
  Receive Date: 20190604
  Receipt Date: 20191028
  Transmission Date: 20200122
  Serious: Yes (Hospitalization, Other)
  Sender: FDA-Public Use
  Company Number: PHEH2019US023348

PATIENT
  Age: 67 Year
  Sex: Male

DRUGS (3)
  1. LENVATINIB [Suspect]
     Active Substance: LENVATINIB
     Dosage: 18 MG, QD
     Route: 048
  2. AFINITOR [Suspect]
     Active Substance: EVEROLIMUS
     Indication: RENAL CANCER
     Dosage: 5 MG, QD
     Route: 048
     Dates: start: 20190516
  3. LENVATINIB [Suspect]
     Active Substance: LENVATINIB
     Indication: RENAL CANCER
     Dosage: 18 MG, QD
     Route: 048
     Dates: start: 20190425

REACTIONS (11)
  - Herpes zoster [Unknown]
  - Asthenia [Unknown]
  - Neuralgia [Unknown]
  - Productive cough [Unknown]
  - Renal cancer [Unknown]
  - Malignant neoplasm progression [Unknown]
  - Fatigue [Unknown]
  - Pneumonia [Unknown]
  - Blood iron decreased [Unknown]
  - Temperature intolerance [Unknown]
  - Dyspnoea [Unknown]

NARRATIVE: CASE EVENT DATE: 20190616
